FAERS Safety Report 22007610 (Version 2)
Quarter: 2023Q1

REPORT INFORMATION
  Report Type: Spontaneous
  Country: SI (occurrence: SI)
  Receive Date: 20230218
  Receipt Date: 20230317
  Transmission Date: 20230418
  Serious: Yes (Other)
  Sender: FDA-Public Use
  Company Number: SI-002147023-NVSC2023SI032861

PATIENT
  Sex: Male
  Weight: 2.3 kg

DRUGS (2)
  1. KESIMPTA [Suspect]
     Active Substance: OFATUMUMAB
     Indication: Foetal exposure during pregnancy
     Dosage: MATERNAL EXPOSURE DURING PREGNANCY: UNKNOWN DOSE
     Route: 064
     Dates: start: 2022
  2. NUVARING [Concomitant]
     Active Substance: ETHINYL ESTRADIOL\ETONOGESTREL
     Indication: Foetal exposure during pregnancy
     Dosage: MATERNAL EXPOSURE DURING PREGNANCY: UNKNOWN DOSE
     Route: 064

REACTIONS (3)
  - Low birth weight baby [Recovered/Resolved]
  - Premature baby [Unknown]
  - Foetal exposure during pregnancy [Unknown]
